FAERS Safety Report 4727716-1 (Version None)
Quarter: 2005Q3

REPORT INFORMATION
  Report Type: 
  Country: None (occurrence: None)
  Receive Date: 20050727
  Receipt Date: 20050713
  Transmission Date: 20060218
  Serious: Yes (Hospitalization)
  Sender: FDA-Public Use
  Company Number: 032-11

PATIENT
  Age: 65 Year
  Sex: Male

DRUGS (19)
  1. TEVETEN [Suspect]
     Indication: HYPERTENSION
     Dosage: 600 MG UNK PO
     Route: 048
     Dates: start: 20011103
  2. TEVETEN [Suspect]
     Indication: THROMBOSIS PROPHYLAXIS
     Dosage: 600 MG UNK PO
     Route: 048
     Dates: start: 20011103
  3. CYCLOSPORINE [Concomitant]
  4. MYCOPHENOLATE MOFETIL [Concomitant]
  5. TRIMETHOPRIM SULFAMETHOXAZOL [Concomitant]
  6. PREDNISONE [Concomitant]
  7. CALCIUM ACETATE [Concomitant]
  8. COLECALCIFEROL [Concomitant]
  9. MAGNESIUM [Concomitant]
  10. ZANTAC [Concomitant]
  11. ASPIRIN [Concomitant]
  12. METROPOLOL TARTRATE [Concomitant]
  13. LASIX [Concomitant]
  14. HYDROCHLOROTHIAZIDE [Concomitant]
  15. PRAVASTATIN SODIUM [Concomitant]
  16. BENZBROMARONE [Concomitant]
  17. TAMSULOSIN HYDROCHLORIDE [Concomitant]
  18. FERROUS SULFATE TAB [Concomitant]
  19. URAPIDIL [Concomitant]

REACTIONS (7)
  - CHOLELITHIASIS [None]
  - COMPUTERISED TOMOGRAM ABNORMAL [None]
  - GASTRITIS EROSIVE [None]
  - HYPERTENSION [None]
  - PANCREATIC CYST [None]
  - PANCREATIC NECROSIS [None]
  - PANCREATITIS RELAPSING [None]
